FAERS Safety Report 6872092-1 (Version None)
Quarter: 2010Q3

REPORT INFORMATION
  Report Type: 
  Country: None (occurrence: None)
  Receive Date: 20100723
  Receipt Date: 20100716
  Transmission Date: 20110219
  Serious: Yes (Other)
  Sender: FDA-Public Use
  Company Number: US-PFIZER INC-2010073598

PATIENT
  Age: 45 Year
  Sex: Female

DRUGS (2)
  1. GEODON [Suspect]
     Dosage: UNK
  2. TRILEPTAL [Suspect]
     Dosage: UNK

REACTIONS (3)
  - HYPOMANIA [None]
  - IMPULSIVE BEHAVIOUR [None]
  - MENSTRUATION IRREGULAR [None]
